FAERS Safety Report 6674778-0 (Version None)
Quarter: 2010Q1

REPORT INFORMATION
  Report Type: 
  Country: None (occurrence: None)
  Receive Date: 20100331
  Receipt Date: 20081104
  Transmission Date: 20100710
  Serious: Yes (Other)
  Sender: FDA-Public Use
  Company Number: 2008033500

PATIENT
  Age: 69 Year
  Sex: Female

DRUGS (7)
  1. CADUET [Suspect]
     Indication: HYPERLIPIDAEMIA
     Dosage: 5 MG/10 MG
  2. CADUET [Suspect]
     Indication: HYPERTENSION
     Dosage: 5 MG/10 MG
  3. SYNTHROID (LEVOTHYROXINE SODUM) [Concomitant]
  4. PAXIL [Concomitant]
  5. AMBIEN [Concomitant]
  6. ASPIRIN [Concomitant]
  7. FOSAMAX [Concomitant]

REACTIONS (5)
  - ARTICULAR DISC DISORDER [None]
  - BREAST PAIN [None]
  - CHEST PAIN [None]
  - DYSPNOEA [None]
  - HIATUS HERNIA [None]
